FAERS Safety Report 19071916 (Version 1)
Quarter: 2021Q1

REPORT INFORMATION
  Report Type: Spontaneous
  Country: GB (occurrence: GB)
  Receive Date: 20210330
  Receipt Date: 20210330
  Transmission Date: 20210420
  Serious: Yes (Hospitalization, Disabling, Other)
  Sender: FDA-Public Use
  Company Number: GB-ACCORD-220750

PATIENT
  Age: 19 Year
  Sex: Female
  Weight: 50 kg

DRUGS (8)
  1. 3/4?METHYLENEDIOXY?N?METHYLAMPHETAMINE [Concomitant]
     Active Substance: MIDOMAFETAMINE
     Indication: ILL-DEFINED DISORDER
  2. CAFFEINE/CAFFEINE CITRATE [Concomitant]
     Active Substance: CAFFEINE CITRATE
     Indication: ILL-DEFINED DISORDER
  3. IBUPROFEN. [Concomitant]
     Active Substance: IBUPROFEN
     Indication: ILL-DEFINED DISORDER
  4. NICOTINE. [Concomitant]
     Active Substance: NICOTINE
     Indication: ILL-DEFINED DISORDER
  5. SERTRALINE [Suspect]
     Active Substance: SERTRALINE HYDROCHLORIDE
     Indication: ILL-DEFINED DISORDER
     Dosage: 50MG
     Route: 048
  6. ALCOHOL. [Concomitant]
     Active Substance: ALCOHOL
     Indication: ILL-DEFINED DISORDER
  7. LEVEST [Concomitant]
     Indication: ILL-DEFINED DISORDER
  8. PARACETAMOL [Concomitant]
     Active Substance: ACETAMINOPHEN
     Indication: ILL-DEFINED DISORDER

REACTIONS (13)
  - Migraine [Recovered/Resolved]
  - Visual impairment [Recovered/Resolved]
  - Depression suicidal [Not Recovered/Not Resolved]
  - Arthralgia [Not Recovered/Not Resolved]
  - Pruritus [Recovered/Resolved]
  - Hypoaesthesia [Recovered/Resolved]
  - Somnolence [Not Recovered/Not Resolved]
  - Dissociation [Not Recovered/Not Resolved]
  - Decreased appetite [Recovering/Resolving]
  - Malaise [Recovered/Resolved]
  - Feeling abnormal [Not Recovered/Not Resolved]
  - Anorgasmia [Not Recovered/Not Resolved]
  - Apathy [Not Recovered/Not Resolved]
